FAERS Safety Report 20705048 (Version 1)
Quarter: 2022Q2

REPORT INFORMATION
  Report Type: Spontaneous
  Country: US (occurrence: US)
  Receive Date: 20220413
  Receipt Date: 20220413
  Transmission Date: 20220721
  Serious: No
  Sender: FDA-Public Use
  Company Number: US-PFIZER INC-202101539191

PATIENT
  Age: 71 Year
  Sex: Female

DRUGS (2)
  1. LORBRENA [Suspect]
     Active Substance: LORLATINIB
     Dosage: 100 MG, DAILY (4 A DAY)
  2. LORBRENA [Suspect]
     Active Substance: LORLATINIB
     Dosage: UNK UNK, DAILY

REACTIONS (2)
  - Swelling [Unknown]
  - Intentional product use issue [Unknown]
